APPROVED DRUG PRODUCT: DIURIL
Active Ingredient: CHLOROTHIAZIDE
Strength: 250MG/5ML
Dosage Form/Route: SUSPENSION;ORAL
Application: N011870 | Product #001
Applicant: SALIX PHARMACEUTICALS INC
Approved: Approved Prior to Jan 1, 1982 | RLD: Yes | RS: No | Type: DISCN